FAERS Safety Report 4547618-3 (Version None)
Quarter: 2004Q4

REPORT INFORMATION
  Report Type: 
  Country: None (occurrence: None)
  Receive Date: 20041227
  Receipt Date: 20041109
  Transmission Date: 20050328
  Serious: No
  Sender: FDA-Public Use
  Company Number: 04P-163-0280249-00

PATIENT
  Age: 41 Year
  Sex: Female
  Weight: 77.1115 kg

DRUGS (4)
  1. HUMIRA [Suspect]
     Indication: RHEUMATOID ARTHRITIS
     Dosage: 40 MG, 1 IN 2 WK, SUBCUTANEOUS
     Route: 058
     Dates: start: 20040103, end: 20041001
  2. PREDNISONE [Concomitant]
  3. FLUOXETINE HYDROCHLORIDE [Concomitant]
  4. VICODIN [Concomitant]

REACTIONS (13)
  - BLISTER [None]
  - CANDIDIASIS [None]
  - COUGH [None]
  - DRY SKIN [None]
  - DYSPNOEA [None]
  - HAEMORRHAGE [None]
  - INFLUENZA LIKE ILLNESS [None]
  - PRURITUS [None]
  - RASH PRURITIC [None]
  - RASH SCALY [None]
  - TREMOR [None]
  - VISION BLURRED [None]
  - VOMITING [None]
